FAERS Safety Report 16483782 (Version 1)
Quarter: 2019Q2

REPORT INFORMATION
  Report Type: Spontaneous
  Country: US (occurrence: US)
  Receive Date: 20190627
  Receipt Date: 20190627
  Transmission Date: 20190711
  Serious: Yes (Hospitalization, Other)
  Sender: FDA-Public Use
  Company Number: US-JNJFOC-20190628475

PATIENT
  Age: 59 Year
  Sex: Male

DRUGS (1)
  1. INVOKANA [Suspect]
     Active Substance: CANAGLIFLOZIN
     Indication: PRODUCT USED FOR UNKNOWN INDICATION
     Route: 048

REACTIONS (6)
  - Sepsis [Unknown]
  - Gangrene [Unknown]
  - Osteomyelitis acute [Unknown]
  - Cellulitis [Unknown]
  - Localised infection [Unknown]
  - Foot amputation [Unknown]

NARRATIVE: CASE EVENT DATE: 201706
